FAERS Safety Report 7388954-5 (Version None)
Quarter: 2011Q2

REPORT INFORMATION
  Report Type: 
  Country: None (occurrence: None)
  Receive Date: 20110401
  Receipt Date: 20110327
  Transmission Date: 20111010
  Serious: Yes (Hospitalization)
  Sender: FDA-Public Use
  Company Number: GR-US-EMD SERONO, INC.-7050300

PATIENT
  Age: 55 Year
  Sex: Female

DRUGS (6)
  1. VROCHOVAXON [Concomitant]
  2. LIPITOR [Concomitant]
  3. REBIF [Suspect]
     Indication: MULTIPLE SCLEROSIS
     Route: 058
     Dates: start: 20030201, end: 20110101
  4. MADOPAN [Concomitant]
  5. ANTIDEPRESSANT [Concomitant]
  6. REBIF [Suspect]
     Route: 058
     Dates: start: 20110101

REACTIONS (4)
  - H1N1 INFLUENZA [None]
  - PYREXIA [None]
  - LEUKOPENIA [None]
  - PNEUMONIA [None]
